FAERS Safety Report 14289542 (Version 1)
Quarter: 2017Q4

REPORT INFORMATION
  Report Type: Spontaneous
  Country: US (occurrence: US)
  Receive Date: 20171215
  Receipt Date: 20171215
  Transmission Date: 20180321
  Serious: No
  Sender: FDA-Public Use
  Company Number: US-BAYER-2017-239867

PATIENT
  Age: 82 Year
  Sex: Male
  Weight: 88.44 kg

DRUGS (1)
  1. MIRALAX [Suspect]
     Active Substance: POLYETHYLENE GLYCOL 3350
     Indication: CONSTIPATION
     Dosage: 1 DF, QD
     Route: 048
     Dates: start: 2000

REACTIONS (4)
  - Incorrect drug administration duration [Unknown]
  - Off label use [Unknown]
  - Product use in unapproved indication [Unknown]
  - Drug administration error [Unknown]

NARRATIVE: CASE EVENT DATE: 2000
